FAERS Safety Report 8502022 (Version 2)
Quarter: 2012Q4

REPORT INFORMATION
  Report Type: 
  Country: ES (occurrence: ES)
  Receive Date: 20120410
  Receipt Date: 20120921
  Transmission Date: 20130627
  Serious: Yes (Death, Hospitalization, Other)
  Sender: FDA-Public Use
  Company Number: ES-CELGENEUS-144-21660-12033269

PATIENT
  Age: 48 Year
  Sex: Female

DRUGS (5)
  1. ABRAXANE [Suspect]
     Indication: BREAST CANCER
     Route: 041
     Dates: start: 20111014, end: 20120207
  2. PANTOPRAZOLE [Concomitant]
     Indication: PROPHYLAXIS
     Route: 048
     Dates: start: 2008
  3. ZOLPIDEM [Concomitant]
     Indication: INSOMNIA
     Dosage: 10 Milligram
     Route: 048
     Dates: start: 2009
  4. NAPROXEN [Concomitant]
     Indication: ANALGESIA
     Dosage: 1000 Milligram
     Route: 048
     Dates: start: 2009
  5. VENLAFAXINE [Concomitant]
     Indication: INSTABILITY VASOMOTOR
     Dosage: 75 Milligram
     Route: 048
     Dates: start: 2009

REACTIONS (3)
  - Hepatic encephalopathy [Fatal]
  - Breast cancer [Fatal]
  - Herpes zoster [Recovered/Resolved]
